FAERS Safety Report 4276786-6 (Version None)
Quarter: 2004Q1

REPORT INFORMATION
  Report Type: 
  Country: None (occurrence: None)
  Receive Date: 20040120
  Receipt Date: 20040106
  Transmission Date: 20041129
  Serious: Yes (Hospitalization)
  Sender: FDA-Public Use
  Company Number: 04P-087-0245491-00

PATIENT
  Age: 35 Year
  Sex: Male

DRUGS (4)
  1. KALETRA [Suspect]
     Indication: HIV INFECTION
     Dosage: 2 IN 1 D, PER ORAL
     Route: 048
  2. AMPRENAVIR [Suspect]
     Indication: HIV INFECTION
     Dosage: 600 MG, 2 IN 1 D, PER ORAL
     Route: 048
  3. ABACAVIR [Concomitant]
  4. LAMIVUDINE [Concomitant]

REACTIONS (3)
  - CHOLELITHIASIS [None]
  - CHOLESTASIS [None]
  - PANCREATITIS [None]
